FAERS Safety Report 9392406 (Version 1)
Quarter: 2013Q3

REPORT INFORMATION
  Report Type: Spontaneous
  Country: US (occurrence: None)
  Receive Date: 20130708
  Receipt Date: 20130708
  Transmission Date: 20140515
  Serious: Yes (Hospitalization)
  Sender: FDA-Public Use
  Company Number: None

PATIENT
  Age: 43 Year
  Sex: Female
  Weight: 46.4 kg

DRUGS (3)
  1. FERRIPROX [Suspect]
     Indication: HAEMOCHROMATOSIS
     Dosage: (2X500MG TABS)
     Route: 048
     Dates: start: 20121121
  2. FERRIPROX [Suspect]
     Indication: TRANSFUSION RELATED COMPLICATION
     Dosage: (2X500MG TABS)
     Route: 048
     Dates: start: 20121121
  3. FERRIPROX [Suspect]
     Indication: HAEMOGLOBIN C DISEASE
     Dosage: (2X500MG TABS)
     Route: 048
     Dates: start: 20121121

REACTIONS (7)
  - Urticaria [None]
  - Miliaria [None]
  - Pyrexia [None]
  - Myalgia [None]
  - Chills [None]
  - Arthralgia [None]
  - Back pain [None]
